FAERS Safety Report 8630464 (Version 6)
Quarter: 2013Q1

REPORT INFORMATION
  Report Type: Spontaneous
  Country: FR (occurrence: FR)
  Receive Date: 20120622
  Receipt Date: 20130312
  Transmission Date: 20140127
  Serious: Yes (Hospitalization)
  Sender: FDA-Public Use
  Company Number: FR-GILEAD-2012-0056725

PATIENT
  Sex: Female

DRUGS (2)
  1. ATRIPLA [Suspect]
     Indication: HIV INFECTION
     Dosage: 1 DF, QD
     Route: 048
     Dates: start: 20101201
  2. UVEDOSE [Concomitant]
     Indication: OSTEOPOROSIS
     Dosage: 1 DF, Q1MONTH
     Route: 048
     Dates: start: 20100312

REACTIONS (2)
  - Muscle rupture [Not Recovered/Not Resolved]
  - Muscle disorder [Recovered/Resolved with Sequelae]
